FAERS Safety Report 13449826 (Version 1)
Quarter: 2017Q2

REPORT INFORMATION
  Report Type: Spontaneous
  Country: US (occurrence: US)
  Receive Date: 20170417
  Receipt Date: 20170417
  Transmission Date: 20170830
  Serious: No
  Sender: FDA-Public Use
  Company Number: US-BION-20160053

PATIENT
  Sex: Male

DRUGS (8)
  1. DIAZEPAM. [Concomitant]
     Active Substance: DIAZEPAM
  2. DOXEPIN [Concomitant]
     Active Substance: DOXEPIN
  3. FISH OIL [Concomitant]
     Active Substance: FISH OIL
  4. GLUTAMATE [Concomitant]
  5. ALEVE [Suspect]
     Active Substance: NAPROXEN SODIUM
     Indication: BACK PAIN
     Route: 048
  6. PAROXETINE. [Concomitant]
     Active Substance: PAROXETINE
  7. METFORMIN [Concomitant]
     Active Substance: METFORMIN HYDROCHLORIDE
  8. BAYER LOW DOSE [Suspect]
     Active Substance: ASPIRIN

REACTIONS (2)
  - Intentional product misuse [Unknown]
  - Dizziness [Not Recovered/Not Resolved]
